FAERS Safety Report 11443058 (Version 1)
Quarter: 2015Q3

REPORT INFORMATION
  Report Type: Spontaneous
  Country: US (occurrence: US)
  Receive Date: 20150901
  Receipt Date: 20150901
  Transmission Date: 20151125
  Serious: No
  Sender: FDA-Public Use
  Company Number: US-PFIZER INC-2015277785

PATIENT
  Age: 67 Year
  Sex: Male

DRUGS (1)
  1. SUTENT [Suspect]
     Active Substance: SUNITINIB MALATE
     Dosage: 25 MG, CYCLIC (ONCE DAILY, 4 WEEKS ON/2 WEEKS OFF)
     Route: 048

REACTIONS (7)
  - Balance disorder [Unknown]
  - Rash [Unknown]
  - Diarrhoea [Recovering/Resolving]
  - Dizziness [Unknown]
  - Headache [Unknown]
  - Skin haemorrhage [Unknown]
  - Impaired healing [Unknown]
